FAERS Safety Report 8082077-8 (Version None)
Quarter: 2012Q1

REPORT INFORMATION
  Report Type: 
  Country: None (occurrence: None)
  Receive Date: 20120127
  Receipt Date: 20110304
  Transmission Date: 20120608
  Serious: No
  Sender: FDA-Public Use
  Company Number: US-ABBOTT-11P-163-0708032-00

PATIENT
  Age: 71 Year
  Sex: Female

DRUGS (4)
  1. SYNTHROID [Concomitant]
     Indication: HYPOTHYROIDISM
  2. BALSALAZIDE DISODIUM [Concomitant]
     Indication: CROHN'S DISEASE
  3. HUMIRA [Suspect]
     Indication: CROHN'S DISEASE
     Dates: start: 20110101
  4. TRICOR [Concomitant]
     Indication: BLOOD TRIGLYCERIDES

REACTIONS (5)
  - ABDOMINAL PAIN UPPER [None]
  - HEADACHE [None]
  - DIZZINESS [None]
  - BLOOD CHOLESTEROL INCREASED [None]
  - CHEST DISCOMFORT [None]
